FAERS Safety Report 4846240-9 (Version None)
Quarter: 2005Q4

REPORT INFORMATION
  Report Type: 
  Country: None (occurrence: None)
  Receive Date: 20051115
  Receipt Date: 20050822
  Transmission Date: 20060501
  Serious: Yes (Hospitalization)
  Sender: FDA-Public Use
  Company Number: 415351

PATIENT
  Age: 46 Year
  Sex: Female
  Weight: 75.3 kg

DRUGS (7)
  1. PEGASYS [Suspect]
     Indication: HEPATITIS C VIRUS
     Dosage: SUBCUTANEOUS
     Route: 058
     Dates: start: 20050511
  2. COPEGUS [Suspect]
     Indication: HEPATITIS C VIRUS
     Dosage: 600 MG  2 PER DAY  ORAL
     Route: 048
     Dates: start: 20050511
  3. LEXAPRO [Concomitant]
  4. MORPHINE [Concomitant]
  5. RESTORIL [Concomitant]
  6. PROTONIX [Concomitant]
  7. RANITIDINE [Concomitant]

REACTIONS (14)
  - ABDOMINAL PAIN [None]
  - APHTHOUS STOMATITIS [None]
  - ARTHRALGIA [None]
  - CHEILITIS [None]
  - COUGH [None]
  - DEPRESSION [None]
  - ECZEMA [None]
  - GINGIVAL SWELLING [None]
  - INSOMNIA [None]
  - MOOD SWINGS [None]
  - PNEUMONIA [None]
  - PYREXIA [None]
  - UNEVALUABLE EVENT [None]
  - WHEEZING [None]
